FAERS Safety Report 13714059 (Version 4)
Quarter: 2017Q3

REPORT INFORMATION
  Report Type: Report from Study
  Country: US (occurrence: US)
  Receive Date: 20170704
  Receipt Date: 20170824
  Transmission Date: 20171127
  Serious: Yes (Hospitalization, Other)
  Sender: FDA-Public Use
  Company Number: US-ACTELION-A-NJ2017-156004

PATIENT
  Age: 82 Year
  Sex: Male
  Weight: 72.56 kg

DRUGS (5)
  1. OPSUMIT [Suspect]
     Active Substance: MACITENTAN
     Indication: PULMONARY ARTERIAL HYPERTENSION
     Dosage: 10 MG, QD
     Route: 048
     Dates: end: 20170328
  2. ADEMPAS [Concomitant]
     Active Substance: RIOCIGUAT
     Dosage: UNK MG, UNK
     Dates: end: 20170328
  3. ADEMPAS [Concomitant]
     Active Substance: RIOCIGUAT
     Dosage: 1 MG, UNK
     Dates: start: 20170706
  4. TYVASO [Concomitant]
     Active Substance: TREPROSTINIL
  5. COUMADIN [Concomitant]
     Active Substance: WARFARIN SODIUM

REACTIONS (11)
  - Brain operation [Unknown]
  - Pneumonia [Unknown]
  - Cardiac operation [Unknown]
  - Pyrexia [Unknown]
  - Cerebrovascular accident [Unknown]
  - Cerebral haemorrhage [Unknown]
  - Endarterectomy [Unknown]
  - Pulmonary embolism [Unknown]
  - Dizziness [Unknown]
  - Headache [Unknown]
  - Dyspnoea exertional [Unknown]

NARRATIVE: CASE EVENT DATE: 20170328
